FAERS Safety Report 8078499-1 (Version None)
Quarter: 2012Q1

REPORT INFORMATION
  Report Type: 
  Country: None (occurrence: None)
  Receive Date: 20120123
  Receipt Date: 20120111
  Transmission Date: 20120608
  Serious: Yes (Other)
  Sender: FDA-Public Use
  Company Number: 2012-00014

PATIENT
  Age: 32 Year
  Sex: Female

DRUGS (1)
  1. ZICAM EXTREME CONGESTION RELIEF [Suspect]
     Indication: NASOPHARYNGITIS
     Dosage: INSERTED NASALLY TWICE DAILY
     Route: 045
     Dates: start: 20111226

REACTIONS (1)
  - DEPENDENCE [None]
